FAERS Safety Report 23828223 (Version 1)
Quarter: 2024Q2

REPORT INFORMATION
  Report Type: Other
  Country: SA (occurrence: None)
  Receive Date: 20240508
  Receipt Date: 20240508
  Transmission Date: 20240716
  Serious: Yes (Hospitalization, Other)
  Sender: FDA-Public Use
  Company Number: SA-Square Pharmaceuticals PLC-000009

PATIENT
  Age: 35 Week
  Sex: Female
  Weight: 1.6 kg

DRUGS (22)
  1. CALCIUM ACETATE [Suspect]
     Active Substance: CALCIUM ACETATE
     Indication: Hypocalcaemia
     Dosage: 2 MG/KG/H
     Route: 042
  2. VITAMIN D [Suspect]
     Active Substance: VITAMIN D NOS
     Indication: Hypocalcaemia
  3. ALFACALCIDOL [Concomitant]
     Active Substance: ALFACALCIDOL
     Indication: Hypoparathyroidism
     Dosage: 0.1 MCG/KG/DAY 6 YEARS
  4. CALCIUM CARBONATE [Concomitant]
     Active Substance: CALCIUM CARBONATE
     Indication: Hypoparathyroidism
     Dosage: 200 MG/KG/DAY
  5. CALCITRIOL [Concomitant]
     Active Substance: CALCITRIOL
     Indication: Hypocalcaemia
     Route: 048
  6. ALFACALCIDOL [Concomitant]
     Active Substance: ALFACALCIDOL
     Indication: Hypoparathyroidism
     Dosage: 0.2 MCG/KG/DAY 4 YEARS
  7. ALFACALCIDOL [Concomitant]
     Active Substance: ALFACALCIDOL
     Indication: Hypoparathyroidism
     Dosage: 0.2 MCG/KG/DAY AT 3 YEARS
  8. ALFACALCIDOL [Concomitant]
     Active Substance: ALFACALCIDOL
     Indication: Hypoparathyroidism
     Dosage: 0.3 MCG/KG/DAY 18 MONTHS
  9. ALFACALCIDOL [Concomitant]
     Active Substance: ALFACALCIDOL
     Indication: Hypoparathyroidism
     Dosage: 1 MCG/KG/DAY, DAY 76
  10. ALFACALCIDOL [Concomitant]
     Active Substance: ALFACALCIDOL
     Indication: Hypoparathyroidism
     Dosage: 2 MCG/KG/DAY, DAY 66
  11. ALFACALCIDOL [Concomitant]
     Active Substance: ALFACALCIDOL
     Indication: Hypoparathyroidism
     Dosage: 2 MCG/KG/DAY, DAY 60
  12. ALFACALCIDOL [Concomitant]
     Active Substance: ALFACALCIDOL
     Indication: Hypoparathyroidism
     Dosage: 1 MCG/KG/DAY, DAY 21
  13. ALFACALCIDOL [Concomitant]
     Active Substance: ALFACALCIDOL
     Indication: Hypoparathyroidism
     Dosage: 1 MCG/KG/DAY, DAY 6
  14. CALCIUM CARBONATE [Concomitant]
     Active Substance: CALCIUM CARBONATE
     Indication: Hypoparathyroidism
     Dosage: 103 MG/KG/DAY 4 YEARS
  15. CALCIUM CARBONATE [Concomitant]
     Active Substance: CALCIUM CARBONATE
     Indication: Hypoparathyroidism
     Dosage: 60 MG/KG/DAY 3 YEARS
  16. CALCIUM CARBONATE [Concomitant]
     Active Substance: CALCIUM CARBONATE
     Indication: Hypoparathyroidism
     Dosage: 40 MG/KG/DAY 18 MONTHS
  17. CALCIUM CARBONATE [Concomitant]
     Active Substance: CALCIUM CARBONATE
     Indication: Hypoparathyroidism
     Dosage: 220 MG/KG/DAY, DAY 76
  18. CALCIUM CARBONATE [Concomitant]
     Active Substance: CALCIUM CARBONATE
     Indication: Hypoparathyroidism
     Dosage: 600 MG/KG/DAY, DAY 66
  19. CALCIUM CARBONATE [Concomitant]
     Active Substance: CALCIUM CARBONATE
     Indication: Hypoparathyroidism
     Dosage: 600 MG/KG/DAY
  20. CALCIUM CARBONATE [Concomitant]
     Active Substance: CALCIUM CARBONATE
     Indication: Hypoparathyroidism
     Dosage: 340 MG/KG/DAY, DAY 21
  21. CALCIUM CARBONATE [Concomitant]
     Active Substance: CALCIUM CARBONATE
     Indication: Hypoparathyroidism
     Dosage: 90 MG/KG/DAY, DAY 6
  22. CALCIUM CARBONATE [Concomitant]
     Active Substance: CALCIUM CARBONATE
     Indication: Hypoparathyroidism
     Dosage: 50 MG/KG/DAY

REACTIONS (4)
  - Treatment failure [Unknown]
  - Administration site extravasation [Unknown]
  - Cutaneous calcification [Unknown]
  - Skin necrosis [Unknown]
